FAERS Safety Report 5533841-8 (Version None)
Quarter: 2007Q4

REPORT INFORMATION
  Report Type: 
  Country: None (occurrence: None)
  Receive Date: 20071129
  Receipt Date: 20071119
  Transmission Date: 20080405
  Serious: Yes (Other)
  Sender: FDA-Public Use
  Company Number: CHNY2007BR03850

PATIENT
  Age: 59 Year
  Sex: Female
  Weight: 64 kg

DRUGS (1)
  1. CIBALENAA (NCH)(CAFFEINE CITRATE, ACETYLSALICYLIC ACID, ACETAMINOPHEN [Suspect]
     Indication: TOOTHACHE

REACTIONS (4)
  - BLOOD CHOLESTEROL INCREASED [None]
  - DEPRESSION [None]
  - EPILEPSY [None]
  - HYPERSENSITIVITY [None]
